FAERS Safety Report 10286693 (Version 1)
Quarter: 2014Q3

REPORT INFORMATION
  Report Type: Spontaneous
  Country: IT (occurrence: IT)
  Receive Date: 20140709
  Receipt Date: 20140709
  Transmission Date: 20150326
  Serious: Yes (Other)
  Sender: FDA-Public Use
  Company Number: IT-MYLANLABS-2014S1015385

PATIENT
  Age: 75 Year
  Sex: Male

DRUGS (1)
  1. CLOPIDOGREL [Suspect]
     Active Substance: CLOPIDOGREL BISULFATE
     Indication: EMBOLIC STROKE
     Dosage: 75 MG DAILY
     Route: 048
     Dates: start: 20140401, end: 20140530

REACTIONS (3)
  - Diabetes mellitus [Unknown]
  - Transient ischaemic attack [Unknown]
  - Hypertension [Unknown]

NARRATIVE: CASE EVENT DATE: 20140520
